FAERS Safety Report 4797713-9 (Version None)
Quarter: 2005Q4

REPORT INFORMATION
  Report Type: 
  Country: None (occurrence: None)
  Receive Date: 20051013
  Receipt Date: 20051004
  Transmission Date: 20060501
  Serious: Yes (Hospitalization)
  Sender: FDA-Public Use
  Company Number: US-MERCK-0510USA03719

PATIENT
  Age: 74 Year
  Sex: Male
  Weight: 101 kg

DRUGS (8)
  1. VIOXX [Suspect]
     Indication: ARTHRITIS
     Route: 048
     Dates: start: 20020101, end: 20040901
  2. TOPROL-XL [Concomitant]
     Route: 065
  3. K-DUR 10 [Concomitant]
     Route: 065
  4. MAGNESIUM (UNSPECIFIED) [Concomitant]
     Route: 065
  5. ASPIRIN [Concomitant]
     Route: 065
  6. IRON (UNSPECIFIED) [Concomitant]
     Route: 065
  7. ALTACE [Concomitant]
     Route: 065
  8. LASIX [Concomitant]
     Route: 065

REACTIONS (9)
  - ACUTE MYOCARDIAL INFARCTION [None]
  - BLEEDING TIME PROLONGED [None]
  - CORONARY ARTERY DISEASE [None]
  - CORONARY ARTERY OCCLUSION [None]
  - GOUTY ARTHRITIS [None]
  - OEDEMA PERIPHERAL [None]
  - PNEUMOCONIOSIS [None]
  - POSTINFARCTION ANGINA [None]
  - RENAL FAILURE [None]
